FAERS Safety Report 18007125 (Version 1)
Quarter: 2020Q3

REPORT INFORMATION
  Report Type: Spontaneous
  Country: US (occurrence: US)
  Receive Date: 20200710
  Receipt Date: 20200710
  Transmission Date: 20201103
  Serious: Yes (Other)
  Sender: FDA-Public Use
  Company Number: US-PERRIGO-20US009445

PATIENT
  Age: 48 Year
  Sex: Female
  Weight: 49.89 kg

DRUGS (4)
  1. EVAMIST [Suspect]
     Active Substance: ESTRADIOL
     Dosage: UNK, QD
     Route: 061
     Dates: start: 20200401
  2. EVAMIST [Suspect]
     Active Substance: ESTRADIOL
     Dosage: 1.53 MG, BID
     Route: 061
     Dates: start: 201910, end: 202001
  3. EVAMIST [Suspect]
     Active Substance: ESTRADIOL
     Dosage: 1.53 MG, QD
     Route: 061
     Dates: start: 202001, end: 20200331
  4. EVAMIST [Suspect]
     Active Substance: ESTRADIOL
     Indication: HORMONE REPLACEMENT THERAPY
     Dosage: 1.53 MG, QD
     Route: 061
     Dates: start: 2009, end: 201910

REACTIONS (7)
  - Mood swings [Not Recovered/Not Resolved]
  - Incorrect dose administered [Not Recovered/Not Resolved]
  - Vulvovaginal dryness [Not Recovered/Not Resolved]
  - Blood calcium decreased [Unknown]
  - Hormone level abnormal [Not Recovered/Not Resolved]
  - Insomnia [Not Recovered/Not Resolved]
  - Seizure [Recovered/Resolved]

NARRATIVE: CASE EVENT DATE: 202001
